FAERS Safety Report 9638891 (Version 2)
Quarter: 2013Q4

REPORT INFORMATION
  Report Type: Spontaneous
  Country: US (occurrence: US)
  Receive Date: 20131022
  Receipt Date: 20131022
  Transmission Date: 20140711
  Serious: No
  Sender: FDA-Public Use
  Company Number: US-BRISTOL-MYERS SQUIBB COMPANY-19115054

PATIENT
  Sex: Female

DRUGS (2)
  1. ELIQUIS [Suspect]
     Dosage: AFTER BREAKFAST 1DOSE?A DINNER 1 DOSE
  2. RECLAST [Suspect]
     Indication: BONE DISORDER

REACTIONS (1)
  - Abdominal discomfort [Unknown]
